FAERS Safety Report 4683278-9 (Version None)
Quarter: 2005Q2

REPORT INFORMATION
  Report Type: 
  Country: None (occurrence: None)
  Receive Date: 20050602
  Receipt Date: 20050311
  Transmission Date: 20051028
  Serious: No
  Sender: FDA-Public Use
  Company Number: USA050393018

PATIENT
  Age: 52 Year
  Sex: Female

DRUGS (5)
  1. CYMBALTA [Suspect]
     Indication: DEPRESSION
     Dosage: 60 MG DAY
     Dates: start: 20050201
  2. FLUOXETINE HCL [Concomitant]
  3. HYPERTENSION MEDICATION [Concomitant]
  4. PREMPRO (PREMARIN;CYCRIN 14/14) [Concomitant]
  5. VITAMINS [Concomitant]

REACTIONS (3)
  - BOWEL SOUNDS ABNORMAL [None]
  - DIARRHOEA [None]
  - FAECAL INCONTINENCE [None]
